FAERS Safety Report 7885231-0 (Version None)
Quarter: 2011Q4

REPORT INFORMATION
  Report Type: 
  Country: None (occurrence: None)
  Receive Date: 20111102
  Receipt Date: 20111028
  Transmission Date: 20120403
  Serious: Yes (Hospitalization, Other)
  Sender: FDA-Public Use
  Company Number: PHHY2011FR95961

PATIENT
  Sex: Male

DRUGS (2)
  1. TRAMADOL HCL [Concomitant]
     Dosage: UNK
  2. VOLTAREN [Suspect]
     Indication: OSTEOARTHRITIS
     Dosage: 1 DF, QOD
     Route: 048

REACTIONS (6)
  - FALL [None]
  - HAEMATOCHEZIA [None]
  - ANAEMIA [None]
  - SKIN ULCER [None]
  - GASTROINTESTINAL HAEMORRHAGE [None]
  - SKIN EXFOLIATION [None]
